FAERS Safety Report 8081699-8 (Version None)
Quarter: 2012Q1

REPORT INFORMATION
  Report Type: 
  Country: None (occurrence: None)
  Receive Date: 20120130
  Receipt Date: 20120123
  Transmission Date: 20120608
  Serious: Yes (Hospitalization)
  Sender: FDA-Public Use
  Company Number: US-AMGEN-USACT2012004615

PATIENT
  Age: 58 Year
  Sex: Female

DRUGS (10)
  1. BLINDED DENOSUMAB [Suspect]
     Indication: BREAST CANCER
     Dates: start: 20111205
  2. VITAMIN D [Concomitant]
     Dosage: 400 IU, UNK
     Route: 048
     Dates: start: 20111205
  3. SYNTHROID [Concomitant]
     Dosage: 50 MUG, QD
     Route: 048
     Dates: start: 20091001
  4. NEULASTA [Concomitant]
  5. BLINDED PLACEBO [Suspect]
     Indication: BREAST CANCER
     Dates: start: 20111205
  6. CYTOXAN [Concomitant]
     Dosage: 1100 MG, Q3WK
     Route: 042
     Dates: start: 20111205
  7. ONDANSETRON HCL [Concomitant]
     Dosage: 8 MG, PRN
     Route: 048
     Dates: start: 20111205
  8. CALCIUM [Concomitant]
     Dosage: 600 MG, UNK
     Route: 048
     Dates: start: 20111205
  9. TAXOTERE [Concomitant]
     Dosage: 140 MG, Q3WK
     Route: 042
     Dates: start: 20111205
  10. COMPAZINE [Concomitant]
     Dosage: 10 MG, PRN
     Route: 048
     Dates: start: 20111205

REACTIONS (1)
  - ABDOMINAL PAIN [None]
